FAERS Safety Report 13179751 (Version 1)
Quarter: 2017Q1

REPORT INFORMATION
  Report Type: Spontaneous
  Country: US (occurrence: US)
  Receive Date: 20170202
  Receipt Date: 20170202
  Transmission Date: 20170428
  Serious: No
  Sender: FDA-Public Use
  Company Number: US-GLAXOSMITHKLINE-US2017013619

PATIENT
  Age: 63 Year
  Sex: Female

DRUGS (2)
  1. VOLTAREN [Suspect]
     Active Substance: DICLOFENAC SODIUM
     Indication: PAIN
  2. VOLTAREN [Suspect]
     Active Substance: DICLOFENAC SODIUM
     Indication: OSTEOARTHRITIS
     Dosage: UNK
     Route: 061
     Dates: end: 2015

REACTIONS (4)
  - Off label use [Unknown]
  - Drug administered at inappropriate site [Unknown]
  - Therapeutic response unexpected [Unknown]
  - Product use issue [Unknown]
